FAERS Safety Report 11121502 (Version 2)
Quarter: 2015Q3

REPORT INFORMATION
  Report Type: Report from Study
  Country: US (occurrence: US)
  Receive Date: 20150519
  Receipt Date: 20150901
  Transmission Date: 20151125
  Serious: Yes (Hospitalization, Other)
  Sender: FDA-Public Use
  Company Number: US-AMGEN-USASL2015047647

PATIENT
  Age: 62 Year
  Sex: Male

DRUGS (1)
  1. ENBREL [Suspect]
     Active Substance: ETANERCEPT
     Indication: PSORIASIS
     Dosage: 50 MG, 2 TIMES/WK
     Route: 065
     Dates: start: 20031114

REACTIONS (10)
  - Drug effect incomplete [Unknown]
  - Laceration [Unknown]
  - Varicose vein [Recovered/Resolved]
  - Skin plaque [Not Recovered/Not Resolved]
  - Rotator cuff repair [Unknown]
  - Accident at work [Unknown]
  - Cardiac disorder [Recovered/Resolved]
  - Cardiac failure congestive [Unknown]
  - Skin exfoliation [Not Recovered/Not Resolved]
  - Injection site pain [Recovered/Resolved]
